FAERS Safety Report 13502306 (Version 2)
Quarter: 2017Q3

REPORT INFORMATION
  Report Type: Report from Study
  Country: CA (occurrence: CA)
  Receive Date: 20170502
  Receipt Date: 20170718
  Transmission Date: 20171127
  Serious: Yes (Hospitalization, Other)
  Sender: FDA-Public Use
  Company Number: CA-AMGEN-CANSL2017063875

PATIENT
  Age: 74 Year
  Sex: Male

DRUGS (5)
  1. ARANESP [Suspect]
     Active Substance: DARBEPOETIN ALFA
     Indication: CHRONIC KIDNEY DISEASE
     Dosage: 20 MUG, Q3WK
     Route: 065
     Dates: start: 20160520
  2. IMURAN [Suspect]
     Active Substance: AZATHIOPRINE
     Indication: INFLAMMATION
     Dosage: UNK
     Route: 065
  3. ARANESP [Suspect]
     Active Substance: DARBEPOETIN ALFA
     Dosage: 20 MG, Q2WK
     Route: 065
  4. ARANESP [Suspect]
     Active Substance: DARBEPOETIN ALFA
     Dosage: UNK, Q2WK
     Route: 065
  5. ARANESP [Suspect]
     Active Substance: DARBEPOETIN ALFA
     Indication: ANAEMIA
     Dosage: UNK, Q6WK
     Route: 065

REACTIONS (9)
  - Renal impairment [Unknown]
  - Weight decreased [Unknown]
  - Cardiac valve disease [Unknown]
  - Blood disorder [Unknown]
  - Hypotension [Unknown]
  - Adverse event [Unknown]
  - Haemoglobin decreased [Unknown]
  - Skin cancer [Unknown]
  - Dialysis [Unknown]

NARRATIVE: CASE EVENT DATE: 2016
